FAERS Safety Report 18526980 (Version 1)
Quarter: 2020Q4

REPORT INFORMATION
  Report Type: Spontaneous
  Country: US (occurrence: US)
  Receive Date: 20201120
  Receipt Date: 20201120
  Transmission Date: 20210114
  Serious: No
  Sender: FDA-Public Use
  Company Number: US-MACLEODS PHARMACEUTICALS US LTD-MAC2020029151

PATIENT

DRUGS (1)
  1. RIZATRIPTAN BENZOATE 10 MG ORALLY DISINTEGRATING TABLETS [Suspect]
     Active Substance: RIZATRIPTAN BENZOATE
     Indication: MIGRAINE
     Dosage: 1 DOSAGE FORM, PRN, ONCE AS NEEDED, SHE HAD 27 TABLETS AND TAKEN 3 TABLETS
     Route: 048
     Dates: start: 2020

REACTIONS (5)
  - Malaise [Unknown]
  - Nausea [Unknown]
  - Vomiting [Unknown]
  - Administration site discomfort [Unknown]
  - Product taste abnormal [Unknown]
